FAERS Safety Report 6979054-4 (Version None)
Quarter: 2010Q3

REPORT INFORMATION
  Report Type: 
  Country: None (occurrence: None)
  Receive Date: 20100913
  Receipt Date: 20100909
  Transmission Date: 20110219
  Serious: Yes (Hospitalization)
  Sender: FDA-Public Use
  Company Number: FR-SANOFI-AVENTIS-2010SA054009

PATIENT
  Age: 59 Year
  Sex: Male

DRUGS (21)
  1. LASIX [Suspect]
     Indication: PRODUCT USED FOR UNKNOWN INDICATION
     Route: 048
     Dates: start: 20100825
  2. TEGELINE [Suspect]
     Indication: PRODUCT USED FOR UNKNOWN INDICATION
     Route: 042
     Dates: start: 20100827, end: 20100828
  3. TEGELINE [Suspect]
     Route: 042
     Dates: start: 20100827, end: 20100828
  4. TEGELINE [Suspect]
     Route: 042
     Dates: start: 20100827, end: 20100828
  5. TEGELINE [Suspect]
     Route: 042
     Dates: start: 20100827, end: 20100828
  6. PERINDOPRIL [Suspect]
     Indication: PRODUCT USED FOR UNKNOWN INDICATION
     Route: 048
     Dates: end: 20100830
  7. LODOZ [Suspect]
     Indication: PRODUCT USED FOR UNKNOWN INDICATION
     Route: 048
     Dates: end: 20100830
  8. ACETYLSALICYLIC ACID/PRAVASTATIN SODIUM [Suspect]
     Indication: PRODUCT USED FOR UNKNOWN INDICATION
     Route: 048
  9. JANUMET [Concomitant]
     Indication: PRODUCT USED FOR UNKNOWN INDICATION
     Route: 048
  10. ALLOPURINOL [Concomitant]
     Indication: PRODUCT USED FOR UNKNOWN INDICATION
     Route: 048
     Dates: end: 20100824
  11. PIASCLEDINE [Concomitant]
     Indication: PRODUCT USED FOR UNKNOWN INDICATION
     Route: 048
  12. ACETAMINOPHEN [Concomitant]
     Indication: PRODUCT USED FOR UNKNOWN INDICATION
     Route: 065
  13. FERVEX [Concomitant]
     Indication: INFLUENZA LIKE ILLNESS
     Route: 048
     Dates: end: 20100824
  14. RHINUREFLEX [Concomitant]
     Indication: INFLUENZA LIKE ILLNESS
     Route: 048
     Dates: end: 20100824
  15. POLERY [Concomitant]
     Route: 048
     Dates: start: 20100823, end: 20100824
  16. AMOXICILLIN [Concomitant]
     Indication: PRODUCT USED FOR UNKNOWN INDICATION
     Route: 065
     Dates: start: 20100824
  17. ROVAMYCINE [Concomitant]
     Indication: PRODUCT USED FOR UNKNOWN INDICATION
     Route: 065
     Dates: start: 20100825
  18. TRAMADOL HCL [Concomitant]
     Indication: PRODUCT USED FOR UNKNOWN INDICATION
     Route: 065
     Dates: start: 20100825
  19. PLATELETS [Concomitant]
     Dosage: DOSE:2 UNIT(S)
     Dates: start: 20100825, end: 20100825
  20. PLATELETS [Concomitant]
     Dosage: DOSE:2 UNIT(S)
     Dates: start: 20100828, end: 20100828
  21. PLATELETS [Concomitant]
     Dosage: DOSE:2 UNIT(S)
     Dates: start: 20100829, end: 20100829

REACTIONS (1)
  - RENAL FAILURE ACUTE [None]
